FAERS Safety Report 18482967 (Version 1)
Quarter: 2020Q4

REPORT INFORMATION
  Report Type: Spontaneous
  Country: US (occurrence: US)
  Receive Date: 20201109
  Receipt Date: 20201109
  Transmission Date: 20210114
  Serious: No
  Sender: FDA-Public Use
  Company Number: US-FOUNDATIONCONSUMERHC-2020-US-017506

PATIENT
  Age: 23 Year
  Sex: Female
  Weight: 43.09 kg

DRUGS (3)
  1. AFTERA [Suspect]
     Active Substance: LEVONORGESTREL
     Indication: POST COITAL CONTRACEPTION
     Dosage: 1.5 MG X 1 DOSE
     Route: 048
     Dates: start: 20200825, end: 20200825
  2. BIOTIN [Concomitant]
     Active Substance: BIOTIN
  3. COLLAGEN [Concomitant]
     Active Substance: COLLAGEN

REACTIONS (1)
  - Contusion [Not Recovered/Not Resolved]

NARRATIVE: CASE EVENT DATE: 20200826
